FAERS Safety Report 5332454-0 (Version None)
Quarter: 2007Q2

REPORT INFORMATION
  Report Type: 
  Country: None (occurrence: None)
  Receive Date: 20070523
  Receipt Date: 20070511
  Transmission Date: 20071010
  Serious: Yes (Hospitalization)
  Sender: FDA-Public Use
  Company Number: FR-ASTRAZENECA-2007CG00750

PATIENT
  Age: 73 Year
  Sex: Female

DRUGS (8)
  1. ATACAND [Suspect]
     Indication: CARDIAC DISORDER
     Route: 048
  2. ALDACTONE [Suspect]
     Indication: CARDIAC DISORDER
     Route: 048
  3. PREVISCAN [Suspect]
     Route: 048
  4. KREDEX [Suspect]
     Indication: CARDIAC DISORDER
     Route: 048
  5. LASIX [Suspect]
     Indication: CARDIAC DISORDER
     Route: 048
  6. CORDARONE [Concomitant]
     Indication: ATRIAL FIBRILLATION
     Route: 048
     Dates: start: 20070413, end: 20070401
  7. CORDARONE [Concomitant]
     Route: 048
     Dates: start: 20070401
  8. LEXOMIL [Concomitant]

REACTIONS (4)
  - ALANINE AMINOTRANSFERASE INCREASED [None]
  - ASPARTATE AMINOTRANSFERASE INCREASED [None]
  - BLOOD ALKALINE PHOSPHATASE INCREASED [None]
  - GAMMA-GLUTAMYLTRANSFERASE INCREASED [None]
